FAERS Safety Report 4569458-1 (Version None)
Quarter: 2005Q1

REPORT INFORMATION
  Report Type: 
  Country: None (occurrence: None)
  Receive Date: 20050118
  Receipt Date: 20040226
  Transmission Date: 20050727
  Serious: Yes (Other)
  Sender: FDA-Public Use
  Company Number: HQWYE467102MAR04

PATIENT
  Sex: Female

DRUGS (1)
  1. PREMPRO [Suspect]
     Indication: MENOPAUSAL SYMPTOMS
     Dosage: 0.245MG/1.5MG TALBET DAILY, ORAL
     Route: 048

REACTIONS (2)
  - CHEST PAIN [None]
  - PAIN IN EXTREMITY [None]
